FAERS Safety Report 16789073 (Version 1)
Quarter: 2019Q3

REPORT INFORMATION
  Report Type: Spontaneous
  Country: GB (occurrence: GB)
  Receive Date: 20190910
  Receipt Date: 20190910
  Transmission Date: 20191005
  Serious: Yes (Death)
  Sender: FDA-Public Use
  Company Number: GB-ACCORD-154246

PATIENT
  Age: 49 Year
  Sex: Female

DRUGS (17)
  1. DOCUSATE/DOCUSATE CALCIUM/DOCUSATE POTASSIUM/DOCUSATE SODIUM [Concomitant]
     Route: 048
  2. PARACETAMOL [Concomitant]
     Active Substance: ACETAMINOPHEN
     Route: 048
  3. CLARITHROMYCIN. [Concomitant]
     Active Substance: CLARITHROMYCIN
     Route: 048
     Dates: end: 20190813
  4. SULFAMETHOXAZOLE/TRIMETHOPRIM [Concomitant]
     Dosage: IN THE MORNING 80MG/400MG
     Route: 048
  5. PARAFFIN [Concomitant]
     Active Substance: PARAFFIN
     Route: 061
  6. CALCIUM/COLECALCIFEROL [Concomitant]
     Dosage: 1.5G/400UNIT
     Route: 048
  7. TACROLIMUS. [Suspect]
     Active Substance: TACROLIMUS
     Indication: PRODUCT USED FOR UNKNOWN INDICATION
     Route: 048
  8. OMEPRAZOLE. [Concomitant]
     Active Substance: OMEPRAZOLE
     Dosage: IN THE MORNING
     Route: 048
  9. PIPERACILLIN/TAZOBACTAM [Concomitant]
     Dosage: PIPERACILLIN 4G / TAZOBACTAM 500MG
     Route: 041
     Dates: start: 20190814
  10. PARAFFIN [Concomitant]
     Active Substance: PARAFFIN
     Route: 061
  11. AMLODIPINE [Concomitant]
     Active Substance: AMLODIPINE BESYLATE
     Route: 048
  12. FLUCONAZOLE. [Concomitant]
     Active Substance: FLUCONAZOLE
     Dosage: IN THE MORNING
     Route: 048
     Dates: end: 20190815
  13. RAMIPRIL. [Concomitant]
     Active Substance: RAMIPRIL
     Route: 048
  14. PREDNISOLONE. [Suspect]
     Active Substance: PREDNISOLONE
     Indication: PRODUCT USED FOR UNKNOWN INDICATION
     Dosage: IN THE MORNING
     Route: 048
  15. DOXYCYCLINE. [Concomitant]
     Active Substance: DOXYCYCLINE
     Route: 048
     Dates: start: 20190815
  16. VORICONAZOLE. [Concomitant]
     Active Substance: VORICONAZOLE
     Route: 041
     Dates: start: 20190814
  17. AMOXICILLIN SODIUM/CLAVULANATE POTASSIUM [Concomitant]
     Dosage: 1000MG/200MG
     Route: 041
     Dates: end: 20190813

REACTIONS (1)
  - Pneumonia [Fatal]

NARRATIVE: CASE EVENT DATE: 20190815
